FAERS Safety Report 7181942-3 (Version None)
Quarter: 2010Q4

REPORT INFORMATION
  Report Type: 
  Country: None (occurrence: None)
  Receive Date: 20101221
  Receipt Date: 20100504
  Transmission Date: 20110411
  Serious: No
  Sender: FDA-Public Use
  Company Number: US-AMGEN-KDL410401

PATIENT

DRUGS (3)
  1. ENBREL [Suspect]
     Indication: PSORIATIC ARTHROPATHY
     Dosage: UNK UNK, UNK
     Dates: start: 20050101
  2. ENBREL [Suspect]
     Indication: PSORIASIS
  3. UNSPECIFIED MEDICATION [Suspect]

REACTIONS (3)
  - ARTHRALGIA [None]
  - INJECTION SITE REACTION [None]
  - PSORIASIS [None]
